FAERS Safety Report 17684633 (Version 2)
Quarter: 2020Q2

REPORT INFORMATION
  Report Type: Spontaneous
  Country: HU (occurrence: HU)
  Receive Date: 20200420
  Receipt Date: 20200522
  Transmission Date: 20200714
  Serious: No
  Sender: FDA-Public Use
  Company Number: HU-SHIRE-HU202013698

PATIENT

DRUGS (6)
  1. HUMAN NORMAL IMMUNOGLOBULIN [Suspect]
     Active Substance: HUMAN IMMUNOGLOBULIN G
     Indication: RESPIRATORY FAILURE
     Dosage: 0.4 GRAM PER KILOGRAM, PER DAY FOR 5 DAYS EVERY 6 WEEKS
     Route: 042
  2. AZATHIOPRINE. [Concomitant]
     Active Substance: AZATHIOPRINE
     Indication: PRODUCT USED FOR UNKNOWN INDICATION
  3. HUMAN NORMAL IMMUNOGLOBULIN [Suspect]
     Active Substance: HUMAN IMMUNOGLOBULIN G
     Indication: NEUROPATHY PERIPHERAL
     Dosage: 0.4 GRAM PER KILOGRAM, EVERY 6 WK
     Route: 042
  4. RITUXIMAB. [Suspect]
     Active Substance: RITUXIMAB
     Indication: NEUROPATHY PERIPHERAL
  5. PREDNISONE. [Concomitant]
     Active Substance: PREDNISONE
     Indication: PRODUCT USED FOR UNKNOWN INDICATION
  6. RITUXIMAB. [Suspect]
     Active Substance: RITUXIMAB
     Indication: RESPIRATORY FAILURE
     Route: 065

REACTIONS (2)
  - Drug ineffective for unapproved indication [Unknown]
  - Product use in unapproved indication [Unknown]
